FAERS Safety Report 14710112 (Version 1)
Quarter: 2018Q2

REPORT INFORMATION
  Report Type: Spontaneous
  Country: FR (occurrence: FR)
  Receive Date: 20180403
  Receipt Date: 20180403
  Transmission Date: 20180711
  Serious: Yes (Hospitalization)
  Sender: FDA-Public Use
  Company Number: FR-ASTRAZENECA-2018SE37885

PATIENT
  Age: 59 Year
  Sex: Female
  Weight: 70 kg

DRUGS (1)
  1. CRESTOR [Suspect]
     Active Substance: ROSUVASTATIN CALCIUM
     Indication: HYPERCHOLESTEROLAEMIA
     Route: 048
     Dates: start: 2010, end: 2017

REACTIONS (3)
  - Hepatic cirrhosis [Recovered/Resolved with Sequelae]
  - Diabetes mellitus [Recovered/Resolved]
  - Hepatic fibrosis [Recovered/Resolved with Sequelae]

NARRATIVE: CASE EVENT DATE: 2010
